FAERS Safety Report 24382524 (Version 2)
Quarter: 2024Q4

REPORT INFORMATION
  Report Type: Spontaneous
  Country: AU (occurrence: None)
  Receive Date: 20241001
  Receipt Date: 20241104
  Transmission Date: 20250115
  Serious: Yes (Hospitalization, Other)
  Sender: ORION
  Company Number: AU-PFIZER INC-PV202400123738

PATIENT
  Age: 12 Year
  Sex: Male
  Weight: 90 kg

DRUGS (10)
  1. METHOTREXATE [Suspect]
     Active Substance: METHOTREXATE
     Indication: Colitis ulcerative
     Dates: start: 20240502
  2. INFLIXIMAB [Suspect]
     Active Substance: INFLIXIMAB
     Indication: Colitis ulcerative
     Dosage: 1ST DOSE
     Dates: start: 20240502
  3. INFLIXIMAB [Suspect]
     Active Substance: INFLIXIMAB
     Dosage: 2ND DOSE
     Dates: start: 20240516
  4. INFLIXIMAB [Suspect]
     Active Substance: INFLIXIMAB
     Dosage: 3RD DOSE
     Dates: start: 20240613
  5. INFLIXIMAB [Suspect]
     Active Substance: INFLIXIMAB
     Dosage: EVERY 6 WEEKS
     Dates: start: 20240808, end: 20240913
  6. INFLIXIMAB [Suspect]
     Active Substance: INFLIXIMAB
     Dosage: 800 MG, EVERY 4 WEEKS,  AT THE 4 WEEKS MARK FROM LAST INFUSION (700 MG)
     Dates: start: 20240913
  7. FOLIC ACID [Concomitant]
     Active Substance: FOLIC ACID
     Dosage: 6 DAYS/WEEK
  8. MESALAMINE [Concomitant]
     Active Substance: MESALAMINE
  9. MESALAMINE [Concomitant]
     Active Substance: MESALAMINE
  10. BUDESONIDE [Concomitant]
     Active Substance: BUDESONIDE

REACTIONS (3)
  - Colitis ulcerative [Recovered/Resolved]
  - Product use in unapproved indication [Unknown]
  - Anaemia [Recovering/Resolving]

NARRATIVE: CASE EVENT DATE: 20240502
